FAERS Safety Report 5036056-5 (Version None)
Quarter: 2006Q2

REPORT INFORMATION
  Report Type: 
  Country: None (occurrence: None)
  Receive Date: 20060530
  Receipt Date: 20060321
  Transmission Date: 20061013
  Serious: Yes (Hospitalization)
  Sender: FDA-Public Use
  Company Number: MPS1-10506

PATIENT
  Age: 31 Year
  Sex: Female
  Weight: 33 kg

DRUGS (7)
  1. ALDURAZYME [Suspect]
     Indication: MUCOPOLYSACCHARIDOSIS I
     Dosage: 1.74 MG Q4WKS IT
     Route: 038
     Dates: start: 20051118, end: 20060317
  2. TRUSOPT [Concomitant]
  3. ALPHAGAN [Concomitant]
  4. LUMIGAN [Concomitant]
  5. PREDNISOLONE [Concomitant]
  6. LASIX [Concomitant]
  7. AMBIEN [Concomitant]

REACTIONS (2)
  - OEDEMA [None]
  - PNEUMONIA [None]
